FAERS Safety Report 6203761-4 (Version None)
Quarter: 2009Q2

REPORT INFORMATION
  Report Type: 
  Country: None (occurrence: None)
  Receive Date: 20090527
  Receipt Date: 20090520
  Transmission Date: 20091009
  Serious: Yes (Death, Life-Threatening, Other)
  Sender: FDA-Public Use
  Company Number: HQWYE772105APR07

PATIENT
  Sex: Female
  Weight: 50 kg

DRUGS (7)
  1. MYLOTARG [Suspect]
     Indication: ACUTE MYELOID LEUKAEMIA
     Route: 041
     Dates: start: 20070228, end: 20070228
  2. OMEPRAZOLE [Concomitant]
     Dosage: 20 MG/DAY
     Route: 041
     Dates: start: 20070312, end: 20070315
  3. MAXIPIME [Concomitant]
     Dosage: 2 G/DAY
     Route: 041
     Dates: start: 20070302, end: 20070305
  4. CARBENIN [Concomitant]
     Indication: PROPHYLAXIS
     Dosage: 1G/DAY
     Route: 041
     Dates: start: 20070217, end: 20070228
  5. CARBENIN [Concomitant]
     Dosage: 1 G/DAY
     Route: 041
     Dates: start: 20070306, end: 20070315
  6. MICAFUNGIN SODIUM [Concomitant]
     Indication: PROPHYLAXIS
     Dosage: 100 MG/DAY
     Route: 041
     Dates: start: 20070217, end: 20070228
  7. MICAFUNGIN SODIUM [Concomitant]
     Dosage: 100 MG/DAY
     Route: 041
     Dates: start: 20070306, end: 20070313

REACTIONS (4)
  - CONDITION AGGRAVATED [None]
  - PLATELET COUNT DECREASED [None]
  - SHOCK HAEMORRHAGIC [None]
  - SMALL INTESTINAL HAEMORRHAGE [None]
